FAERS Safety Report 19457951 (Version 1)
Quarter: 2021Q2

REPORT INFORMATION
  Report Type: Report from Study
  Country: KR (occurrence: KR)
  Receive Date: 20210624
  Receipt Date: 20210624
  Transmission Date: 20210717
  Serious: Yes (Hospitalization, Other)
  Sender: FDA-Public Use
  Company Number: KR-GILEAD-2021-0537670

PATIENT
  Age: 67 Year
  Sex: Male

DRUGS (8)
  1. ELIQUIS [Concomitant]
     Active Substance: APIXABAN
     Indication: PULMONARY ARTERIAL HYPERTENSION
     Dosage: 5 MG, TID 5 2/1
     Dates: start: 20190925, end: 202012
  2. AMBRISENTAN [Suspect]
     Active Substance: AMBRISENTAN
     Indication: PULMONARY ARTERIAL HYPERTENSION
     Dosage: 5 MG
     Route: 048
     Dates: start: 20200617
  3. DIGOXIN. [Concomitant]
     Active Substance: DIGOXIN
     Indication: PULMONARY ARTERIAL HYPERTENSION
     Dosage: 0.25 MG, TID 0.125 1/1
     Dates: start: 20190910
  4. DILATREND [Concomitant]
     Active Substance: CARVEDILOL
     Indication: PULMONARY ARTERIAL HYPERTENSION
     Dosage: 12.5 MG, TID 25 2/1
     Dates: start: 20190910, end: 202006
  5. ALDACTONE [Concomitant]
     Active Substance: SPIRONOLACTONE
     Indication: PULMONARY ARTERIAL HYPERTENSION
     Dosage: 25 MG, TID 12.5 1/1 FCT
     Dates: start: 20190910
  6. LASIX [Concomitant]
     Active Substance: FUROSEMIDE
     Indication: PULMONARY ARTERIAL HYPERTENSION
     Dosage: 40 MG, TID 20 1/1
     Dates: start: 20190910
  7. GLUCOPHAGE [Concomitant]
     Active Substance: METFORMIN HYDROCHLORIDE
     Indication: PULMONARY ARTERIAL HYPERTENSION
     Dosage: 1 MG, TID 2000 2/1
     Dates: start: 2019
  8. DIAMICRON [Concomitant]
     Active Substance: GLICLAZIDE
     Indication: PULMONARY ARTERIAL HYPERTENSION
     Dosage: 30 MG, TID MR 120 1/1
     Dates: start: 2019

REACTIONS (1)
  - Pulmonary hypertension [Recovered/Resolved]

NARRATIVE: CASE EVENT DATE: 20200619
